FAERS Safety Report 6924891-5 (Version None)
Quarter: 2010Q3

REPORT INFORMATION
  Report Type: 
  Country: None (occurrence: None)
  Receive Date: 20100816
  Receipt Date: 20100804
  Transmission Date: 20110219
  Serious: Yes (Hospitalization)
  Sender: FDA-Public Use
  Company Number: US-SANOFI-AVENTIS-2010SA045662

PATIENT
  Age: 86 Year
  Sex: Male

DRUGS (6)
  1. PLAVIX [Suspect]
     Indication: PLATELET AGGREGATION INHIBITION
     Route: 048
     Dates: start: 20100330
  2. ASPIRIN [Interacting]
     Indication: PERCUTANEOUS CORONARY INTERVENTION
     Route: 048
     Dates: start: 20100330
  3. INVESTIGATIONAL DRUG [Concomitant]
     Indication: CEREBROVASCULAR ACCIDENT PROPHYLAXIS
     Route: 048
     Dates: start: 20080929, end: 20090920
  4. INVESTIGATIONAL DRUG [Concomitant]
     Route: 048
     Dates: start: 20090924, end: 20100308
  5. INVESTIGATIONAL DRUG [Concomitant]
     Route: 048
     Dates: start: 20100310, end: 20100329
  6. FUROSEMIDE [Concomitant]
     Route: 042
     Dates: start: 20100409, end: 20100409

REACTIONS (7)
  - ANAEMIA [None]
  - CHEST PAIN [None]
  - CORONARY ARTERY DISEASE [None]
  - DRUG INTERACTION [None]
  - DYSPNOEA [None]
  - MEDICATION ERROR [None]
  - OFF LABEL USE [None]
